FAERS Safety Report 19577286 (Version 1)
Quarter: 2021Q3

REPORT INFORMATION
  Report Type: Report from Study
  Country: None (occurrence: US)
  Receive Date: 20210719
  Receipt Date: 20210719
  Transmission Date: 20211014
  Serious: Yes (Other)
  Sender: FDA-Public Use
  Company Number: US-ABBVIE-21K-163-3994537-00

PATIENT
  Sex: Female

DRUGS (1)
  1. HUMIRA [Suspect]
     Active Substance: ADALIMUMAB
     Indication: CROHN^S DISEASE
     Dosage: CITRATE FREE
     Route: 058

REACTIONS (9)
  - Diarrhoea [Not Recovered/Not Resolved]
  - Wound infection fungal [Not Recovered/Not Resolved]
  - Herpes zoster [Recovered/Resolved]
  - Precancerous cells present [Not Recovered/Not Resolved]
  - Skin exfoliation [Not Recovered/Not Resolved]
  - Candida infection [Unknown]
  - Dyschezia [Not Recovered/Not Resolved]
  - Melanocytic naevus [Recovered/Resolved]
  - Dry skin [Not Recovered/Not Resolved]
